FAERS Safety Report 9981254 (Version 1)
Quarter: 2014Q1

REPORT INFORMATION
  Report Type: Spontaneous
  Country: US (occurrence: None)
  Receive Date: 20140306
  Receipt Date: 20140306
  Transmission Date: 20141002
  Serious: Yes (Other)
  Sender: FDA-Public Use
  Company Number: None

PATIENT
  Age: 73 Year
  Sex: Female
  Weight: 79.38 kg

DRUGS (2)
  1. SIMVASTATIN 40 MG [Suspect]
     Indication: BLOOD CHOLESTEROL INCREASED
     Route: 048
     Dates: start: 20130902, end: 20140227
  2. SIMVASTATIN 40 MG [Suspect]
     Indication: BLOOD TRIGLYCERIDES INCREASED
     Route: 048
     Dates: start: 20130902, end: 20140227

REACTIONS (4)
  - Dementia [None]
  - Fear [None]
  - Product substitution issue [None]
  - Memory impairment [None]
